FAERS Safety Report 8758150 (Version 1)
Quarter: 2012Q4

REPORT INFORMATION
  Report Type: 
  Country: US (occurrence: US)
  Receive Date: 20120828
  Receipt Date: 20120828
  Transmission Date: 20130627
  Serious: Yes (Other)
  Sender: FDA-Public Use
  Company Number: CHPA2012US018771

PATIENT
  Age: 76 Year
  Sex: Male

DRUGS (3)
  1. MAALOX ADV MAXIMUM STRENGTH ANTACID/ANTIGAS [Suspect]
     Indication: DYSPEPSIA
     Dosage: 3 TSP, PRN
     Route: 048
     Dates: start: 2007
  2. ANTI-PARKINSON DRUGS [Concomitant]
     Indication: PARKINSON^S DISEASE
     Dosage: Unk, Unk
  3. DRUG THERAPY NOS [Concomitant]
     Indication: REPRODUCTIVE TRACT DISORDER
     Dosage: Unk, Unk

REACTIONS (2)
  - Hypertension [Not Recovered/Not Resolved]
  - Expired drug administered [Unknown]
